FAERS Safety Report 4639539-2 (Version None)
Quarter: 2005Q2

REPORT INFORMATION
  Report Type: 
  Country: None (occurrence: None)
  Receive Date: 20050418
  Receipt Date: 20050401
  Transmission Date: 20051028
  Serious: Yes (Congenital Anomaly)
  Sender: FDA-Public Use
  Company Number: 004603

PATIENT
  Sex: Male
  Weight: 3.1 kg

DRUGS (4)
  1. DIDANOSINE (DIDANOSINE) DELAYED RELEASE CAPSULES, 250MG [Suspect]
     Indication: HIV INFECTION
     Dosage: 250.00 MG, QD, TRANSPLACENTAL
     Route: 064
     Dates: start: 20040101, end: 20041229
  2. VIREAD [Suspect]
     Indication: HIV INFECTION
     Dosage: 300.00 MG, QD, TRANSPLACENTAL
     Route: 064
     Dates: start: 20040101, end: 20041229
  3. KALETRA [Suspect]
     Indication: HIV INFECTION
     Dosage: SEE IMAGE
     Route: 064
     Dates: start: 20040101, end: 20040828
  4. KALETRA [Suspect]
     Indication: HIV INFECTION
     Dosage: SEE IMAGE
     Route: 064
     Dates: start: 20040828, end: 20041229

REACTIONS (2)
  - DRUG EXPOSURE DURING PREGNANCY [None]
  - TRISOMY 8 [None]
